FAERS Safety Report 5088526-1 (Version None)
Quarter: 2006Q3

REPORT INFORMATION
  Report Type: 
  Country: None (occurrence: None)
  Receive Date: 20060822
  Receipt Date: 20060814
  Transmission Date: 20061208
  Serious: Yes (Hospitalization)
  Sender: FDA-Public Use
  Company Number: GXKR2006FR04741

PATIENT
  Age: 58 Year
  Sex: Male

DRUGS (9)
  1. VERAPAMIL [Suspect]
     Indication: HYPERTENSION
     Dosage: 240 MG, QD
  2. AZATHIOPRINE [Concomitant]
  3. RAMIPRIL [Concomitant]
  4. NICARDIPINE (NICARDIPINE) [Concomitant]
  5. PRAVASTATIN [Concomitant]
  6. CALCIUM CARBONATE (CALCIUM CARBONATE) [Concomitant]
  7. SODIUM CITRATE [Concomitant]
  8. ZOPICLONE (ZOPICLONE) [Concomitant]
  9. DARBEPOETIN ALFA (DARBEPOETIN ALFA) [Concomitant]

REACTIONS (5)
  - ATRIOVENTRICULAR BLOCK THIRD DEGREE [None]
  - BLOOD POTASSIUM INCREASED [None]
  - HAEMODIALYSIS [None]
  - NODAL RHYTHM [None]
  - SYNCOPE [None]
